FAERS Safety Report 9626648 (Version 1)
Quarter: 2013Q4

REPORT INFORMATION
  Report Type: Spontaneous
  Country: US (occurrence: US)
  Receive Date: 20131016
  Receipt Date: 20131016
  Transmission Date: 20140711
  Serious: No
  Sender: FDA-Public Use
  Company Number: US-PFIZER INC-2013294781

PATIENT
  Sex: 0

DRUGS (2)
  1. CELEBREX [Suspect]
     Dosage: UNK
  2. HUMIRA [Interacting]
     Dosage: UNK

REACTIONS (1)
  - Drug interaction [Unknown]
